FAERS Safety Report 18904113 (Version 1)
Quarter: 2021Q1

REPORT INFORMATION
  Report Type: Report from Study
  Country: US (occurrence: US)
  Receive Date: 20210217
  Receipt Date: 20210217
  Transmission Date: 20210420
  Serious: Yes (Death, Other)
  Sender: FDA-Public Use
  Company Number: US-ASTRAZENECA-2021A056449

PATIENT
  Age: 28034 Day
  Sex: Male
  Weight: 77 kg

DRUGS (1)
  1. LYNPARZA [Suspect]
     Active Substance: OLAPARIB
     Indication: ACUTE MYELOID LEUKAEMIA
     Route: 048
     Dates: start: 20201110, end: 202012

REACTIONS (5)
  - Malignant neoplasm progression [Not Recovered/Not Resolved]
  - Blast cell crisis [Unknown]
  - Death [Fatal]
  - Drug ineffective [Not Recovered/Not Resolved]
  - Chloroma [Unknown]

NARRATIVE: CASE EVENT DATE: 202012
